FAERS Safety Report 8126884-1 (Version None)
Quarter: 2012Q1

REPORT INFORMATION
  Report Type: 
  Country: None (occurrence: None)
  Receive Date: 20120210
  Receipt Date: 20120203
  Transmission Date: 20120608
  Serious: No
  Sender: FDA-Public Use
  Company Number: US-PFIZER INC-001-0945-991119

PATIENT
  Sex: Female
  Weight: 54.43 kg

DRUGS (5)
  1. NEURONTIN [Suspect]
     Dosage: 100 MG, 2X/DAY
     Route: 048
  2. NEURONTIN [Suspect]
     Indication: NEUROPATHY PERIPHERAL
     Dosage: UNK
     Route: 048
  3. NEURONTIN [Suspect]
     Indication: DEPRESSION
     Dosage: 100 MG DAILY
     Route: 048
  4. LYRICA [Suspect]
     Indication: NEUROPATHY PERIPHERAL
     Dosage: UNK
     Route: 048
  5. NEURONTIN [Suspect]
     Indication: MOOD SWINGS
     Dosage: SPLITTING 600 MG AND TAKING DAILY
     Route: 048

REACTIONS (3)
  - FEELING DRUNK [None]
  - BALANCE DISORDER [None]
  - VISUAL ACUITY REDUCED [None]
